FAERS Safety Report 8052585-4 (Version None)
Quarter: 2012Q1

REPORT INFORMATION
  Report Type: 
  Country: None (occurrence: None)
  Receive Date: 20120117
  Receipt Date: 20120117
  Transmission Date: 20120608
  Serious: Yes (Hospitalization)
  Sender: FDA-Public Use
  Company Number: None

PATIENT
  Age: 63 Year
  Sex: Male
  Weight: 123.2 kg

DRUGS (2)
  1. CISPLATIN [Suspect]
     Dosage: 123 MG EVERY DAY IV
     Route: 042
     Dates: start: 20110829, end: 20110831
  2. MELOXICAM [Suspect]
     Dosage: 15 MG EVERY DAY PO
     Route: 048
     Dates: start: 20110709, end: 20110909

REACTIONS (1)
  - RENAL FAILURE ACUTE [None]
